FAERS Safety Report 9409453 (Version 2)
Quarter: 2013Q2

REPORT INFORMATION
  Report Type: Spontaneous
  Country: PT (occurrence: None)
  Receive Date: 20130422
  Receipt Date: 20130524
  Transmission Date: 20140414
  Serious: Yes (Hospitalization)
  Sender: FDA-Public Use
  Company Number: GAM-030-13-PT

PATIENT
  Age: 42 Year
  Sex: Female

DRUGS (4)
  1. OCTAGAM [Suspect]
     Indication: CHRONIC INFLAMMATORY DEMYELINATING POLYRADICULONEUROPATHY
     Dosage: (1X 6/WEEKS) INTRAVENOUS (NOT OTHERWISE SPECIFIED)?
     Route: 042
     Dates: start: 20120924, end: 20120926
  2. PREGABALIN [Concomitant]
  3. FLUOXETINE [Concomitant]
  4. ZOLPIDEM [Concomitant]

REACTIONS (2)
  - Intracranial venous sinus thrombosis [None]
  - Intracranial pressure increased [None]
